FAERS Safety Report 11182451 (Version 2)
Quarter: 2015Q2

REPORT INFORMATION
  Report Type: Spontaneous
  Country: US (occurrence: US)
  Receive Date: 20150611
  Receipt Date: 20150624
  Transmission Date: 20150821
  Serious: Yes (Hospitalization)
  Sender: FDA-Public Use
  Company Number: US-UNITED THERAPEUTICS-UNT-2015-005193

PATIENT
  Age: 64 Year
  Sex: Female
  Weight: 61.22 kg

DRUGS (3)
  1. TYVASO [Suspect]
     Active Substance: TREPROSTINIL
     Dosage: 18-54 MICROGRAMS, QID
  2. TYVASO [Suspect]
     Active Substance: TREPROSTINIL
     Indication: PULMONARY HYPERTENSION
     Dosage: 18-54 MICROGRAMS, QID
     Dates: start: 20150421
  3. TYVASO [Suspect]
     Active Substance: TREPROSTINIL
     Dosage: UNK
     Dates: start: 20150429

REACTIONS (20)
  - Nausea [Unknown]
  - Jaundice [Unknown]
  - Biliary drainage [Unknown]
  - Chest discomfort [Unknown]
  - Cough [Unknown]
  - Lip pain [Unknown]
  - Vomiting [Unknown]
  - Asthenia [Unknown]
  - Malaise [Unknown]
  - Lip oedema [Unknown]
  - Pruritus [Unknown]
  - Headache [Unknown]
  - Tooth disorder [Unknown]
  - Hot flush [Unknown]
  - Nasal congestion [Unknown]
  - Weight decreased [Unknown]
  - Fatigue [Unknown]
  - Decreased appetite [Unknown]
  - Dizziness [Unknown]
  - Gallbladder disorder [Unknown]

NARRATIVE: CASE EVENT DATE: 201504
